FAERS Safety Report 8189537-X (Version None)
Quarter: 2012Q1

REPORT INFORMATION
  Report Type: 
  Country: None (occurrence: None)
  Receive Date: 20120302
  Receipt Date: 20120220
  Transmission Date: 20120608
  Serious: Yes (Other)
  Sender: FDA-Public Use
  Company Number: B0783809A

PATIENT
  Age: 15 Year
  Sex: Male

DRUGS (9)
  1. ACYCLOVIR [Suspect]
     Indication: ENCEPHALITIS HERPES
     Dosage: 30 MG/KG/DAY/UNK/INTRAVENOUS
     Route: 042
  2. PHENOBARBITAL TAB [Concomitant]
  3. HALOPERIDOL [Concomitant]
  4. LEVETIRACETAM [Concomitant]
  5. MEROPENEM [Concomitant]
  6. VANCOMYCIN [Concomitant]
  7. UNKNOWN [Concomitant]
  8. CIPROFLOXACIN [Concomitant]
  9. CLONAZEPAM [Concomitant]

REACTIONS (1)
  - DERMATITIS BULLOUS [None]
